FAERS Safety Report 9732729 (Version 2)
Quarter: 2014Q1

REPORT INFORMATION
  Report Type: Spontaneous
  Country: CA (occurrence: CA)
  Receive Date: 20131204
  Receipt Date: 20140314
  Transmission Date: 20141002
  Serious: Yes (Hospitalization, Other)
  Sender: FDA-Public Use
  Company Number: CA-GLAXOSMITHKLINE-A1047776A

PATIENT
  Sex: Male

DRUGS (1)
  1. VOTRIENT [Suspect]
     Indication: METASTATIC RENAL CELL CARCINOMA
     Dosage: 800MG PER DAY
     Route: 048

REACTIONS (12)
  - Abdominal pain lower [Unknown]
  - Abdominal adhesions [Unknown]
  - Intestinal obstruction [Unknown]
  - Nausea [Unknown]
  - Vomiting [Unknown]
  - Decreased appetite [Unknown]
  - Pneumonia [Unknown]
  - Metastases to lung [Unknown]
  - Headache [Unknown]
  - Epistaxis [Unknown]
  - Weight decreased [Unknown]
  - Malignant neoplasm progression [Unknown]
